FAERS Safety Report 7902052-0 (Version None)
Quarter: 2011Q4

REPORT INFORMATION
  Report Type: 
  Country: None (occurrence: None)
  Receive Date: 20111108
  Receipt Date: 20111028
  Transmission Date: 20120403
  Serious: Yes (Hospitalization)
  Sender: FDA-Public Use
  Company Number: JP-GLAXOSMITHKLINE-B0751655A

PATIENT
  Sex: Male

DRUGS (3)
  1. VALTREX [Suspect]
     Indication: HERPES ZOSTER
     Dosage: 3000MG PER DAY
     Dates: start: 20110913, end: 20110915
  2. RINPRAL [Concomitant]
     Dosage: 2000MG PER DAY
     Route: 048
     Dates: start: 20110925, end: 20110925
  3. VALTREX [Suspect]
     Dosage: 9000MG PER DAY
     Dates: start: 20110925, end: 20110925

REACTIONS (9)
  - ANXIETY [None]
  - RENAL FAILURE [None]
  - BLOOD UREA INCREASED [None]
  - MULTIPLE DRUG OVERDOSE INTENTIONAL [None]
  - FEAR [None]
  - AZOTAEMIA [None]
  - NAUSEA [None]
  - HYPERVENTILATION [None]
  - BLOOD CREATININE INCREASED [None]
